FAERS Safety Report 8723822 (Version 2)
Quarter: 2012Q4

REPORT INFORMATION
  Report Type: 
  Country: FR (occurrence: FR)
  Receive Date: 20120815
  Receipt Date: 20120904
  Transmission Date: 20130627
  Serious: Yes (Hospitalization)
  Sender: FDA-Public Use
  Company Number: FR-ELI_LILLY_AND_COMPANY-FR201208003220

PATIENT
  Age: 86 Year
  Sex: Female

DRUGS (12)
  1. CYMBALTA [Suspect]
     Dosage: 60 mg, qd
     Route: 048
     Dates: end: 20120628
  2. PREVISCAN [Concomitant]
     Indication: ARRHYTHMIA
     Dosage: 20 mg, qd
     Dates: start: 20120617, end: 20120617
  3. KARDEGIC [Concomitant]
     Dosage: 75 mg, qd
     Dates: start: 20120617, end: 20120617
  4. PLAVIX [Concomitant]
     Dosage: 75 mg, UNK
     Dates: start: 20120617, end: 20120617
  5. HYTACAND [Concomitant]
     Dosage: 8 mg, qd
  6. HYTACAND [Concomitant]
     Dosage: 12.5 mg, qd
  7. ISOPTINE [Concomitant]
     Dosage: 120 mg, bid
  8. FEMARA [Concomitant]
     Dosage: 2.5 mg, qd
  9. EXELON [Concomitant]
     Dosage: 9.5 mg, qd
  10. CRESTOR [Concomitant]
     Dosage: 60 mg, qd
  11. CRESTOR [Concomitant]
     Dosage: 10 mg, qd
  12. NATISPRAY [Concomitant]
     Indication: PAIN
     Dosage: UNK, prn

REACTIONS (4)
  - Anaemia [Recovering/Resolving]
  - International normalised ratio increased [Recovered/Resolved]
  - Gastric ulcer haemorrhage [Recovering/Resolving]
  - Diverticulum [Unknown]
